FAERS Safety Report 8257358-5 (Version None)
Quarter: 2012Q1

REPORT INFORMATION
  Report Type: 
  Country: None (occurrence: None)
  Receive Date: 20120330
  Receipt Date: 20120330
  Transmission Date: 20120608
  Serious: Yes (Other)
  Sender: FDA-Public Use
  Company Number: None

PATIENT
  Age: 80 Year
  Sex: Male
  Weight: 70.7611 kg

DRUGS (5)
  1. DILANTIN [Concomitant]
  2. LUMIGAN [Concomitant]
  3. LIPITOR [Suspect]
     Indication: BLOOD CHOLESTEROL INCREASED
     Dosage: 1 TABLET 1 A DAY MOUTH
     Route: 048
     Dates: start: 20111209, end: 20120116
  4. LISINOPRIL [Concomitant]
  5. ZONISAMIDE [Concomitant]

REACTIONS (8)
  - BLOOD URINE PRESENT [None]
  - BLOOD POTASSIUM INCREASED [None]
  - BALANCE DISORDER [None]
  - MEMORY IMPAIRMENT [None]
  - GRAND MAL CONVULSION [None]
  - HYPERTENSION [None]
  - BLOOD CREATINE INCREASED [None]
  - BLOOD GLUCOSE INCREASED [None]
